FAERS Safety Report 8334066 (Version 2)
Quarter: 2013Q3

REPORT INFORMATION
  Report Type: Spontaneous
  Country: US (occurrence: US)
  Receive Date: 20120112
  Receipt Date: 20130807
  Transmission Date: 20140515
  Serious: Yes (Hospitalization)
  Sender: FDA-Public Use
  Company Number: US-BAYER-2012-003294

PATIENT
  Age: 40 Year
  Sex: Female

DRUGS (2)
  1. BEYAZ [Suspect]
  2. LEVAQUIN [Concomitant]

REACTIONS (1)
  - Pulmonary embolism [None]
